FAERS Safety Report 4880331-1 (Version None)
Quarter: 2006Q1

REPORT INFORMATION
  Report Type: 
  Country: None (occurrence: None)
  Receive Date: 20060111
  Receipt Date: 20051227
  Transmission Date: 20060701
  Serious: Yes (Death, Other)
  Sender: FDA-Public Use
  Company Number: 2005-BP-21894RO

PATIENT
  Age: 24 Year
  Sex: Female
  Weight: 55.9 kg

DRUGS (12)
  1. LORAZEPAM [Suspect]
     Indication: SEDATION
     Dosage: MAXIMUM 50 MG/HR, IV
     Route: 042
  2. PROPYLENE GLYCOL [Suspect]
     Dosage: IV
     Route: 042
  3. FENTANYL [Suspect]
     Indication: SEDATION
     Dosage: 60 MICROGRAM/HR TITRATED, IV
     Route: 042
  4. CISATRACURIUM (CISATRACURIUM) [Suspect]
     Indication: SEDATION
     Dosage: 7.3 MICROGRAM/KG/MIN TITRATED AS NEEDED
  5. MIDAZOLAM HCL [Suspect]
     Indication: SEDATION
  6. PROPOFOL [Suspect]
     Indication: SEDATION
  7. AZITHROMYCIN [Concomitant]
  8. CEFTRIAXONE [Concomitant]
  9. VANCOMYCIN [Concomitant]
  10. FAMOTIDINE [Concomitant]
  11. HEPARIN [Concomitant]
  12. DOCUSATE (DOCUSATE) [Concomitant]

REACTIONS (10)
  - BLOOD PRESSURE SYSTOLIC DECREASED [None]
  - CARDIAC ARREST [None]
  - HYPOTENSION [None]
  - LACTIC ACIDOSIS [None]
  - METABOLIC ACIDOSIS [None]
  - PNEUMOTHORAX [None]
  - PYREXIA [None]
  - RESPIRATORY ACIDOSIS [None]
  - TACHYCARDIA [None]
  - URINE OUTPUT DECREASED [None]
